FAERS Safety Report 9218741 (Version 1)
Quarter: 2013Q1

REPORT INFORMATION
  Report Type: Spontaneous
  Country: US (occurrence: None)
  Receive Date: 20120827
  Receipt Date: 20120827
  Transmission Date: 20140127
  Serious: No
  Sender: FDA-Public Use
  Company Number: 350960

PATIENT
  Sex: Female

DRUGS (3)
  1. VICTOZA (LIRAGLUTIDE) SOLUTION FOR INJECTION, 6MG/ML [Suspect]
     Indication: PRODUCT USED FOR UNKNOWN INDICATION
     Route: 058
  2. METFORMIN [Concomitant]
  3. GLIMEPIRIDE [Concomitant]

REACTIONS (4)
  - Alopecia [None]
  - Dizziness [None]
  - Bronchitis [None]
  - Nasopharyngitis [None]
